FAERS Safety Report 9344670 (Version 1)
Quarter: 2013Q2

REPORT INFORMATION
  Report Type: Spontaneous
  Country: US (occurrence: None)
  Receive Date: 20130611
  Receipt Date: 20130611
  Transmission Date: 20140414
  Serious: Yes (Life-Threatening, Hospitalization)
  Sender: FDA-Public Use
  Company Number: None

PATIENT
  Age: 40 Year
  Sex: Male
  Weight: 91.6 kg

DRUGS (2)
  1. VENLAFAXINE [Suspect]
     Route: 048
     Dates: start: 20130604, end: 20130607
  2. AMITRIPTYLINE [Suspect]
     Indication: PAIN
     Route: 061
     Dates: start: 20130603, end: 20130607

REACTIONS (7)
  - Depressed level of consciousness [None]
  - Delirium [None]
  - Hyperhidrosis [None]
  - Pain in extremity [None]
  - Serotonin syndrome [None]
  - Hypertension [None]
  - Autonomic nervous system imbalance [None]
